FAERS Safety Report 6026225-X (Version None)
Quarter: 2008Q4

REPORT INFORMATION
  Report Type: 
  Country: None (occurrence: None)
  Receive Date: 20081230
  Receipt Date: 20081217
  Transmission Date: 20090506
  Serious: Yes (Hospitalization)
  Sender: FDA-Public Use
  Company Number: US025220

PATIENT
  Age: 17 Year
  Sex: Female

DRUGS (1)
  1. MODAFINIL [Suspect]
     Indication: NARCOLEPSY
     Dosage: ORAL
     Route: 048
     Dates: start: 20080101

REACTIONS (3)
  - CONVERSION DISORDER [None]
  - MUSCULAR WEAKNESS [None]
  - STRESS [None]
